FAERS Safety Report 18582568 (Version 2)
Quarter: 2020Q4

REPORT INFORMATION
  Report Type: Spontaneous
  Country: NL (occurrence: NL)
  Receive Date: 20201205
  Receipt Date: 20201215
  Transmission Date: 20210114
  Serious: Yes (Other)
  Sender: FDA-Public Use
  Company Number: NL-AUROBINDO-AUR-APL-2020-058995

PATIENT
  Age: 71 Year
  Sex: Male

DRUGS (20)
  1. PIPERACILLIN AND TAZOBACTAM [Suspect]
     Active Substance: PIPERACILLIN SODIUM\TAZOBACTAM SODIUM
     Indication: KLEBSIELLA INFECTION
  2. COTRIMOXAZOL [Suspect]
     Active Substance: SULFAMETHOXAZOLE\TRIMETHOPRIM
     Indication: KLEBSIELLA INFECTION
     Dosage: UNK
     Route: 065
  3. COTRIMOXAZOL [Suspect]
     Active Substance: SULFAMETHOXAZOLE\TRIMETHOPRIM
     Indication: PROSTATITIS
  4. AUGMENTIN [Suspect]
     Active Substance: AMOXICILLIN\CLAVULANATE POTASSIUM
     Indication: KLEBSIELLA INFECTION
     Dosage: 625 MILLIGRAM, 3 TIMES A DAY (DURING 10 DAYS)
     Route: 065
  5. CIPROFLOXACIN. [Suspect]
     Active Substance: CIPROFLOXACIN
     Indication: KLEBSIELLA INFECTION
     Dosage: UNK
     Route: 065
  6. NITROFURANTO?NE [Suspect]
     Active Substance: NITROFURANTOIN
     Indication: KLEBSIELLA INFECTION
  7. FOSFOMYCINE [Suspect]
     Active Substance: FOSFOMYCIN
     Indication: PROSTATITIS
  8. CIPROFLOXACIN. [Suspect]
     Active Substance: CIPROFLOXACIN
     Indication: PROSTATITIS
  9. COTRIMOXAZOL [Suspect]
     Active Substance: SULFAMETHOXAZOLE\TRIMETHOPRIM
     Indication: KLEBSIELLA INFECTION
  10. FOSFOMYCINE [Suspect]
     Active Substance: FOSFOMYCIN
     Indication: KLEBSIELLA INFECTION
  11. CIPROFLOXACIN. [Suspect]
     Active Substance: CIPROFLOXACIN
     Indication: KLEBSIELLA INFECTION
  12. PIPERACILLIN AND TAZOBACTAM [Suspect]
     Active Substance: PIPERACILLIN SODIUM\TAZOBACTAM SODIUM
     Indication: KLEBSIELLA INFECTION
     Dosage: 4500 MILLIGRAM, 3 TIMES A DAY FOR SEVEN DAYS
     Route: 042
  13. TRIMETHOPRIM. [Suspect]
     Active Substance: TRIMETHOPRIM
     Indication: KLEBSIELLA INFECTION
  14. NITROFURANTO?NE [Suspect]
     Active Substance: NITROFURANTOIN
     Indication: KLEBSIELLA INFECTION
     Dosage: UNK
     Route: 065
  15. PIPERACILLIN AND TAZOBACTAM [Suspect]
     Active Substance: PIPERACILLIN SODIUM\TAZOBACTAM SODIUM
     Indication: PROSTATITIS
     Dosage: 13.5 MILLIGRAM, ONCE A DAY
     Route: 065
  16. TRIMETHOPRIM. [Suspect]
     Active Substance: TRIMETHOPRIM
     Indication: KLEBSIELLA INFECTION
     Dosage: UNK
     Route: 065
  17. FOSFOMYCINE [Suspect]
     Active Substance: FOSFOMYCIN
     Indication: KLEBSIELLA INFECTION
     Dosage: UNK
     Route: 065
  18. NITROFURANTO?NE [Suspect]
     Active Substance: NITROFURANTOIN
     Indication: PROSTATITIS
  19. TRIMETHOPRIM. [Suspect]
     Active Substance: TRIMETHOPRIM
     Indication: PROSTATITIS
  20. AUGMENTIN [Suspect]
     Active Substance: AMOXICILLIN\CLAVULANATE POTASSIUM
     Indication: PROSTATITIS

REACTIONS (2)
  - Drug ineffective [Recovering/Resolving]
  - Therapy partial responder [Recovering/Resolving]
